FAERS Safety Report 7911920-5 (Version None)
Quarter: 2011Q4

REPORT INFORMATION
  Report Type: 
  Country: None (occurrence: None)
  Receive Date: 20111102
  Receipt Date: 20101012
  Transmission Date: 20120403
  Serious: Yes (Other)
  Sender: FDA-Public Use
  Company Number: AUR-APL-2010-02606

PATIENT
  Age: 55 Year
  Sex: Female

DRUGS (3)
  1. METOPROLOL TARTRATE [Suspect]
  2. LISINOPRIL [Suspect]
  3. LIPITOR [Suspect]

REACTIONS (1)
  - LIVER FUNCTION TEST ABNORMAL [None]
